FAERS Safety Report 8256910 (Version 2)
Quarter: 2014Q3

REPORT INFORMATION
  Report Type: Spontaneous
  Country: US (occurrence: US)
  Receive Date: 20111121
  Receipt Date: 20140728
  Transmission Date: 20150326
  Serious: Yes (Hospitalization)
  Sender: FDA-Public Use
  Company Number: US-GLAXOSMITHKLINE-A0932388A

PATIENT
  Sex: Male
  Weight: 146.8 kg

DRUGS (1)
  1. AVANDIA [Suspect]
     Active Substance: ROSIGLITAZONE MALEATE
     Indication: DIABETES MELLITUS
     Dosage: 8MG PER DAY
     Route: 048
     Dates: start: 20000505, end: 20070507

REACTIONS (4)
  - Cardiac failure congestive [Unknown]
  - Cardiac disorder [Unknown]
  - Atrial fibrillation [Unknown]
  - Cardiovascular disorder [Unknown]
